FAERS Safety Report 11050241 (Version 1)
Quarter: 2015Q2

REPORT INFORMATION
  Report Type: Report from Study
  Country: US (occurrence: US)
  Receive Date: 20150421
  Receipt Date: 20150421
  Transmission Date: 20150821
  Serious: Yes (Other)
  Sender: FDA-Public Use
  Company Number: US-AMGEN-USASL2015036684

PATIENT
  Age: 64 Year
  Sex: Female
  Weight: 50.34 kg

DRUGS (1)
  1. PROCRIT [Suspect]
     Active Substance: ERYTHROPOIETIN
     Indication: PRODUCT USED FOR UNKNOWN INDICATION
     Dosage: 40000 UNIT/ML, UNK
     Route: 065
     Dates: start: 20140930

REACTIONS (2)
  - Heart valve replacement [Unknown]
  - Hypertension [Unknown]
